FAERS Safety Report 14436415 (Version 2)
Quarter: 2018Q1

REPORT INFORMATION
  Report Type: Report from Study
  Country: FR (occurrence: FR)
  Receive Date: 20180125
  Receipt Date: 20180207
  Transmission Date: 20180509
  Serious: Yes (Hospitalization, Other)
  Sender: FDA-Public Use
  Company Number: FR-TAKEDA-2018MPI000654

PATIENT
  Age: 59 Year
  Sex: Male
  Weight: 60 kg

DRUGS (11)
  1. KALEORID LP [Concomitant]
     Active Substance: POTASSIUM CHLORIDE
     Indication: HYPOKALAEMIA
     Dosage: 1000 MG, BID
     Route: 048
     Dates: start: 20171217
  2. NEFOPAM [Concomitant]
     Active Substance: NEFOPAM
     Indication: GAIT DISTURBANCE
     Dosage: 20 MG, UNK
     Route: 042
     Dates: start: 20171203, end: 20180107
  3. PANTOPRAZOLE [Concomitant]
     Active Substance: PANTOPRAZOLE
     Indication: OESOPHAGITIS
  4. REVLIMID [Suspect]
     Active Substance: LENALIDOMIDE
     Indication: PLASMA CELL MYELOMA
     Dosage: UNK, QD
     Route: 048
     Dates: start: 20171219, end: 20180107
  5. FUROSEMIDE. [Concomitant]
     Active Substance: FUROSEMIDE
     Indication: DIURETIC THERAPY
     Dosage: 20 MG, QD
     Route: 048
     Dates: start: 20171226, end: 20180108
  6. DEXAMETHASONE. [Concomitant]
     Active Substance: DEXAMETHASONE
     Indication: PLASMA CELL MYELOMA
     Dosage: 40 MG, 1/WEEK
     Route: 048
     Dates: start: 20171219
  7. IXAZOMIB [Suspect]
     Active Substance: IXAZOMIB
     Indication: PLASMA CELL MYELOMA
     Dosage: UNK
     Route: 065
  8. BIONOLYTE GLUCOSE [Concomitant]
     Indication: DEHYDRATION
     Dosage: 1 L, QD
     Route: 042
     Dates: start: 20171203
  9. DIOSMECTITE [Concomitant]
     Active Substance: MONTMORILLONITE
     Indication: DIARRHOEA
     Dosage: UNK UNK, QD
     Route: 048
     Dates: start: 20171217
  10. TIORFAN [Concomitant]
     Active Substance: RACECADOTRIL
     Indication: DIARRHOEA
     Dosage: 100 MG, BID
     Route: 048
     Dates: start: 20171222
  11. PANTOPRAZOLE [Concomitant]
     Active Substance: PANTOPRAZOLE
     Indication: MELAENA
     Dosage: 40 MG, BID
     Route: 048
     Dates: start: 20171222

REACTIONS (2)
  - Cholestasis [Not Recovered/Not Resolved]
  - Transaminases increased [Not Recovered/Not Resolved]

NARRATIVE: CASE EVENT DATE: 20180115
